FAERS Safety Report 7243238-0 (Version None)
Quarter: 2011Q1

REPORT INFORMATION
  Report Type: 
  Country: None (occurrence: None)
  Receive Date: 20110125
  Receipt Date: 20110118
  Transmission Date: 20110831
  Serious: Yes (Hospitalization)
  Sender: FDA-Public Use
  Company Number: US-ROCHE-748668

PATIENT
  Sex: Female

DRUGS (24)
  1. LIDODERM [Concomitant]
     Dates: start: 20091106
  2. METOCLOPRAMIDE [Concomitant]
  3. TIGECYCLINE [Concomitant]
     Dates: start: 20110105
  4. FLUOXETINE [Concomitant]
     Dates: start: 20100503
  5. INSULIN [Concomitant]
     Dosage: DRUG: INSULIN SLIDING SCALE
  6. HYDROMORPHONE [Concomitant]
     Dates: start: 20101228
  7. ONDANSETRON [Concomitant]
  8. ASPIRIN [Concomitant]
     Dates: start: 20091216
  9. CALCIUM [Concomitant]
     Dates: start: 20080805
  10. AMITRIPTYLINE [Concomitant]
     Dates: start: 20090304
  11. ROSUVASTATIN [Concomitant]
     Dates: start: 20101206
  12. MICAFUNGIN [Concomitant]
     Dosage: DRUG: MICAFUNGIN SODIUM
     Dates: start: 20101228
  13. BELATACEPT [Suspect]
     Route: 042
     Dates: start: 20080729
  14. PANTOPRAZOLE [Concomitant]
     Dates: start: 20101205
  15. LISINOPRIL [Concomitant]
     Dates: start: 20100310
  16. CRESTOR [Concomitant]
     Dates: start: 20100920
  17. DAPTOMYCIN [Concomitant]
     Dates: start: 20101228
  18. PIPERACILLIN AND TAZOBACTAM [Concomitant]
     Dates: start: 20101228
  19. MEROPENEM [Concomitant]
  20. MYCOPHENOLATE MOFETIL [Suspect]
     Route: 048
     Dates: start: 20080730
  21. METFORMIN HCL [Concomitant]
     Dates: start: 20101117
  22. MOBIC [Concomitant]
     Dates: start: 20101014
  23. BYETTA [Concomitant]
     Dates: start: 20101112
  24. ZOLPIDEM [Concomitant]

REACTIONS (10)
  - BACK PAIN [None]
  - NAUSEA [None]
  - ABSCESS LIMB [None]
  - BILIARY TRACT DISORDER [None]
  - HYPOTENSION [None]
  - VOMITING [None]
  - URINARY TRACT INFECTION [None]
  - ABDOMINAL PAIN [None]
  - DIARRHOEA [None]
  - RENAL FAILURE [None]
